FAERS Safety Report 4639704-4 (Version None)
Quarter: 2005Q2

REPORT INFORMATION
  Report Type: 
  Country: None (occurrence: None)
  Receive Date: 20050418
  Receipt Date: 20050404
  Transmission Date: 20051028
  Serious: Yes (Hospitalization, Other)
  Sender: FDA-Public Use
  Company Number: 2005054833

PATIENT
  Age: 56 Year
  Sex: Female

DRUGS (2)
  1. CELEBREX [Suspect]
     Indication: ILL-DEFINED DISORDER
     Dosage: ORAL
     Route: 048
     Dates: start: 20000901
  2. LEFLUNOMIDE [Suspect]
     Indication: ILL-DEFINED DISORDER
     Dosage: 20 MG (1 IN 1 D), ORAL
     Route: 048
     Dates: start: 20000930

REACTIONS (3)
  - DIFFUSE LARGE B-CELL LYMPHOMA [None]
  - FELTY'S SYNDROME [None]
  - PAROTID GLAND ENLARGEMENT [None]
